FAERS Safety Report 6803214-6 (Version None)
Quarter: 2010Q2

REPORT INFORMATION
  Report Type: 
  Country: None (occurrence: None)
  Receive Date: 20100628
  Receipt Date: 20100617
  Transmission Date: 20101027
  Serious: Yes (Hospitalization)
  Sender: FDA-Public Use
  Company Number: B0658014A

PATIENT
  Sex: Male

DRUGS (11)
  1. VALTREX [Suspect]
     Indication: ORAL HERPES
     Dosage: 2IUAX PER DAY
     Route: 048
     Dates: start: 20100521, end: 20100525
  2. VIBRAMYCIN [Suspect]
     Indication: DERMAL CYST
     Dates: start: 20100508, end: 20100510
  3. HYPEN [Suspect]
     Indication: DERMAL CYST
     Route: 048
     Dates: start: 20100508, end: 20100519
  4. LOBU [Suspect]
     Indication: DRUG USE FOR UNKNOWN INDICATION
     Route: 048
     Dates: start: 20100510, end: 20100517
  5. EPEL [Suspect]
     Indication: DRUG USE FOR UNKNOWN INDICATION
     Route: 048
     Dates: start: 20100510, end: 20100517
  6. TEPRENONE [Suspect]
     Indication: DRUG USE FOR UNKNOWN INDICATION
     Route: 048
     Dates: start: 20100510, end: 20100517
  7. KEFLEX [Suspect]
     Indication: DRUG USE FOR UNKNOWN INDICATION
     Route: 048
     Dates: start: 20100519
  8. BUFFERIN [Suspect]
     Indication: DRUG USE FOR UNKNOWN INDICATION
     Route: 048
     Dates: start: 20100519
  9. ROCEPHIN [Suspect]
     Indication: DRUG USE FOR UNKNOWN INDICATION
     Dates: start: 20100520
  10. LOXONIN [Suspect]
     Indication: DRUG USE FOR UNKNOWN INDICATION
     Dates: start: 20100520
  11. BACAMPICILLIN [Suspect]
     Indication: DRUG USE FOR UNKNOWN INDICATION
     Dates: start: 20100521

REACTIONS (13)
  - ALANINE AMINOTRANSFERASE INCREASED [None]
  - ASPARTATE AMINOTRANSFERASE INCREASED [None]
  - BLOOD CREATINE PHOSPHOKINASE ABNORMAL [None]
  - C-REACTIVE PROTEIN INCREASED [None]
  - GAMMA-GLUTAMYLTRANSFERASE INCREASED [None]
  - HERPES SIMPLEX [None]
  - LIP EROSION [None]
  - LYMPHOCYTE COUNT DECREASED [None]
  - MONOCYTE COUNT ABNORMAL [None]
  - NEUTROPHIL COUNT INCREASED [None]
  - OROPHARYNGEAL BLISTERING [None]
  - RASH [None]
  - WHITE BLOOD CELL COUNT INCREASED [None]
